FAERS Safety Report 22269279 (Version 1)
Quarter: 2023Q2

REPORT INFORMATION
  Report Type: Spontaneous
  Country: US (occurrence: None)
  Receive Date: 20230501
  Receipt Date: 20230501
  Transmission Date: 20230721
  Serious: Yes (Hospitalization)
  Sender: FDA-Public Use
  Company Number: US-ROCHE-3337567

PATIENT
  Age: 62 Year
  Sex: Male

DRUGS (26)
  1. OBINUTUZUMAB [Suspect]
     Active Substance: OBINUTUZUMAB
     Indication: Non-small cell lung cancer metastatic
     Route: 042
     Dates: start: 20230117
  2. OBINUTUZUMAB [Suspect]
     Active Substance: OBINUTUZUMAB
     Indication: Non-small cell lung cancer
  3. TAXOTERE [Suspect]
     Active Substance: DOCETAXEL
     Indication: Non-small cell lung cancer metastatic
     Dosage: ON DAY 5 AND EVERY 21 DAYS
     Route: 042
     Dates: start: 20230203
  4. TAXOTERE [Suspect]
     Active Substance: DOCETAXEL
     Indication: Non-small cell lung cancer
  5. NAPTUMOMAB ESTAFENATOX [Suspect]
     Active Substance: NAPTUMOMAB ESTAFENATOX
     Indication: Non-small cell lung cancer metastatic
     Dosage: 892 MCG (1-4 EVERY 21 DAYS)
     Route: 042
     Dates: start: 20230130
  6. NAPTUMOMAB ESTAFENATOX [Suspect]
     Active Substance: NAPTUMOMAB ESTAFENATOX
     Indication: Non-small cell lung cancer
  7. TESSALON [Concomitant]
     Active Substance: BENZONATATE
     Indication: Cough
  8. CODEINE PHOSPHATE [Concomitant]
     Active Substance: CODEINE PHOSPHATE
  9. MYTUSSIN DAC [Concomitant]
     Indication: Cough
     Dosage: EVERY 4 HOURS
     Route: 048
  10. MORPHINE [Concomitant]
     Active Substance: MORPHINE
     Indication: Lung neoplasm malignant
     Dosage: EVERY 4 HOURS
  11. MORPHINE [Concomitant]
     Active Substance: MORPHINE
     Indication: Cough
  12. LEVOFLOXACIN [Concomitant]
     Active Substance: LEVOFLOXACIN
     Dosage: ONCE DAILY
  13. ELIQUIS [Concomitant]
     Active Substance: APIXABAN
     Indication: Deep vein thrombosis
  14. FLUTICASONE FUROATE [Concomitant]
     Active Substance: FLUTICASONE FUROATE
  15. UMECLIDINIUM [Concomitant]
     Active Substance: UMECLIDINIUM
  16. TRELEGY ELLIPTA [Concomitant]
     Active Substance: FLUTICASONE FUROATE\UMECLIDINIUM BROMIDE\VILANTEROL TRIFENATATE
     Indication: Lung neoplasm malignant
  17. TRELEGY ELLIPTA [Concomitant]
     Active Substance: FLUTICASONE FUROATE\UMECLIDINIUM BROMIDE\VILANTEROL TRIFENATATE
     Indication: Cough
  18. GABAPENTIN [Concomitant]
     Active Substance: GABAPENTIN
     Indication: Neuropathy peripheral
  19. IPRATROPIUM [Concomitant]
     Active Substance: IPRATROPIUM
  20. ALBUTEROL\IPRATROPIUM [Concomitant]
     Active Substance: ALBUTEROL\IPRATROPIUM
     Indication: Lung neoplasm malignant
  21. LEVOTHYROXINE [Concomitant]
     Active Substance: LEVOTHYROXINE
     Indication: Hypothyroidism
  22. TRAMADOL [Concomitant]
     Active Substance: TRAMADOL
     Indication: Pain
     Dosage: EVERY 8 HOURS
     Route: 048
  23. CEFEPIME [Concomitant]
     Active Substance: CEFEPIME HYDROCHLORIDE
     Dosage: EVERY 8 HOURS
     Route: 042
     Dates: start: 20230210
  24. METRONIDAZOLE [Concomitant]
     Active Substance: METRONIDAZOLE
     Dosage: EVERY 8 HOURS
     Route: 042
  25. GRANIX [Concomitant]
     Active Substance: TBO-FILGRASTIM
     Indication: Neutropenia
     Dosage: ONCE DAILY
     Route: 058
  26. ZOSYN [Concomitant]
     Active Substance: PIPERACILLIN SODIUM\TAZOBACTAM SODIUM
     Indication: Febrile neutropenia
     Dosage: EVERY 6 HOURS
     Route: 042

REACTIONS (3)
  - Febrile neutropenia [Recovered/Resolved]
  - Abdominal pain [Recovered/Resolved]
  - Pneumonitis [Unknown]
